FAERS Safety Report 8842618 (Version 1)
Quarter: 2012Q4

REPORT INFORMATION
  Report Type: 
  Country: US (occurrence: US)
  Receive Date: 20121016
  Receipt Date: 20121016
  Transmission Date: 20130627
  Serious: Yes (Other)
  Sender: FDA-Public Use
  Company Number: US-ROCHE-1122212

PATIENT
  Sex: Female

DRUGS (1)
  1. NUTROPIN [Suspect]
     Indication: ENDOCRINE DISORDER
     Dosage: drug indication: UNSPECIFIED ENDOCRINE DISORDER (DISTURBANCE: ENDOCRINE NOS, HORMONE NOS, INFANTILIS
     Route: 065

REACTIONS (6)
  - Malaise [Unknown]
  - Haemosiderosis [Unknown]
  - Kabuki make-up syndrome [Unknown]
  - Osteoporosis [Unknown]
  - Body height decreased [Unknown]
  - Back pain [Unknown]
